FAERS Safety Report 21303077 (Version 1)
Quarter: 2022Q3

REPORT INFORMATION
  Report Type: Spontaneous
  Country: US (occurrence: None)
  Receive Date: 20220907
  Receipt Date: 20220907
  Transmission Date: 20221026
  Serious: Yes (Other)
  Sender: FDA-Public Use
  Company Number: None

PATIENT
  Age: 69 Year
  Sex: Female

DRUGS (2)
  1. ROTIGOTINE [Suspect]
     Active Substance: ROTIGOTINE
     Indication: Parkinson^s disease
     Dosage: FREQUENCY : DAILY;?
     Route: 062
  2. TRAZODONE [Concomitant]
     Active Substance: TRAZODONE HYDROCHLORIDE
     Dates: start: 20220815, end: 20220830

REACTIONS (3)
  - Psychotic disorder [None]
  - Incorrect dose administered [None]
  - Agitation [None]

NARRATIVE: CASE EVENT DATE: 20220830
